FAERS Safety Report 10465364 (Version 1)
Quarter: 2014Q3

REPORT INFORMATION
  Report Type: Spontaneous
  Country: NL (occurrence: NL)
  Receive Date: 20140919
  Receipt Date: 20140919
  Transmission Date: 20150326
  Serious: Yes (Life-Threatening, Other)
  Sender: FDA-Public Use
  Company Number: NL-ROXANE LABORATORIES, INC.-2014-RO-01384RO

PATIENT
  Age: 42 Year
  Sex: Female

DRUGS (6)
  1. INSULIN [Suspect]
     Active Substance: INSULIN NOS
     Indication: PRODUCT USED FOR UNKNOWN INDICATION
     Route: 065
  2. DULOXETINE [Suspect]
     Active Substance: DULOXETINE
     Indication: PRODUCT USED FOR UNKNOWN INDICATION
     Route: 065
  3. QUETIAPINE FUMARATE. [Suspect]
     Active Substance: QUETIAPINE FUMARATE
     Indication: PRODUCT USED FOR UNKNOWN INDICATION
     Route: 065
  4. FLURAZEPAM [Suspect]
     Active Substance: FLURAZEPAM\FLURAZEPAM HYDROCHLORIDE
     Indication: PRODUCT USED FOR UNKNOWN INDICATION
     Route: 065
  5. SUCCINYLCHOLINE [Suspect]
     Active Substance: SUCCINYLCHOLINE
     Indication: ELECTROCONVULSIVE THERAPY
     Route: 065
  6. ETOMIDATE. [Concomitant]
     Active Substance: ETOMIDATE
     Indication: ELECTROCONVULSIVE THERAPY
     Route: 065

REACTIONS (4)
  - Electrocardiogram QRS complex prolonged [Recovered/Resolved]
  - Ventricular fibrillation [Unknown]
  - Neuroleptic malignant syndrome [Unknown]
  - Hyperkalaemia [Recovered/Resolved]
